FAERS Safety Report 5740253-0 (Version None)
Quarter: 2008Q2

REPORT INFORMATION
  Report Type: 
  Country: None (occurrence: None)
  Receive Date: 20080516
  Receipt Date: 20080506
  Transmission Date: 20081010
  Serious: Yes (Hospitalization)
  Sender: FDA-Public Use
  Company Number: US-JNJFOC-20080501722

PATIENT
  Sex: Female
  Weight: 54.43 kg

DRUGS (5)
  1. FENTANYL TRANSDERMAL SYSTEM [Suspect]
     Route: 062
  2. FENTANYL TRANSDERMAL SYSTEM [Suspect]
     Indication: BACK PAIN
     Route: 062
  3. ACTIQ [Suspect]
     Route: 002
  4. ACTIQ [Suspect]
     Indication: BACK PAIN
     Route: 002
  5. OXYCONTIN [Concomitant]

REACTIONS (3)
  - BLOOD COUNT ABNORMAL [None]
  - HYPOTENSION [None]
  - WITHDRAWAL SYNDROME [None]
